FAERS Safety Report 5977354-8 (Version None)
Quarter: 2008Q4

REPORT INFORMATION
  Report Type: 
  Country: None (occurrence: None)
  Receive Date: 20081203
  Receipt Date: 20081126
  Transmission Date: 20090506
  Serious: Yes (Other)
  Sender: FDA-Public Use
  Company Number: JP-BAYER-200812549BYL

PATIENT
  Age: 75 Year
  Sex: Female
  Weight: 39 kg

DRUGS (8)
  1. ASPIRIN [Suspect]
     Indication: ARTERIAL OCCLUSIVE DISEASE
     Dosage: TOTAL DAILY DOSE: 100 MG  UNIT DOSE: 100 MG
     Route: 048
     Dates: start: 20070702
  2. BUFFERIN [Suspect]
     Indication: ARTERIAL OCCLUSIVE DISEASE
     Dosage: TOTAL DAILY DOSE: 81 MG  UNIT DOSE: 81 MG
     Route: 048
     Dates: start: 20030905, end: 20070701
  3. PROSNER [Suspect]
     Indication: ARTERIAL OCCLUSIVE DISEASE
     Dosage: TOTAL DAILY DOSE: 80 ?G  UNIT DOSE: 20 ?G
     Route: 048
     Dates: start: 20020204, end: 20081021
  4. LOCHOL [Suspect]
     Indication: HYPERLIPIDAEMIA
     Dosage: TOTAL DAILY DOSE: 30 MG
     Route: 048
     Dates: start: 20020208, end: 20081106
  5. ACTONEL [Suspect]
     Indication: OSTEOPOROSIS
     Dosage: TOTAL DAILY DOSE: 17.5 MG  UNIT DOSE: 17.5 MG
     Route: 048
     Dates: start: 20061110
  6. LIPIDIL [Suspect]
     Indication: HYPERLIPIDAEMIA
     Dosage: TOTAL DAILY DOSE: 100 MG  UNIT DOSE: 100 MG
     Route: 048
     Dates: start: 20050401, end: 20081106
  7. LUVOX [Suspect]
     Indication: DEPRESSION
     Dosage: TOTAL DAILY DOSE: 25 MG  UNIT DOSE: 25 MG
     Route: 048
     Dates: start: 20060113
  8. BUP-4 [Suspect]
     Indication: POLLAKIURIA
     Dosage: TOTAL DAILY DOSE: 10 MG  UNIT DOSE: 10 MG
     Route: 048
     Dates: start: 20040121

REACTIONS (3)
  - DEPRESSION [None]
  - INTERSTITIAL LUNG DISEASE [None]
  - POLLAKIURIA [None]
